FAERS Safety Report 6158640-8 (Version None)
Quarter: 2009Q2

REPORT INFORMATION
  Report Type: 
  Country: None (occurrence: None)
  Receive Date: 20090415
  Receipt Date: 20090403
  Transmission Date: 20091009
  Serious: Yes (Other)
  Sender: FDA-Public Use
  Company Number: 8044564

PATIENT
  Age: 22 Year
  Sex: Female

DRUGS (12)
  1. KEPPRA [Suspect]
     Indication: CONVULSION
     Dosage: 500 MG /D PO
     Route: 048
     Dates: start: 20080916
  2. MIRALAX [Concomitant]
  3. DIOVAN [Concomitant]
  4. COLACE [Concomitant]
  5. BENADRYL [Concomitant]
  6. VITAMINS NOS [Concomitant]
  7. HECTOROL [Concomitant]
  8. PHOSLO [Concomitant]
  9. PROCARDIA XL [Concomitant]
  10. SENSIPAR [Concomitant]
  11. SYNTHROID [Concomitant]
  12. TOPROL-XL [Concomitant]

REACTIONS (1)
  - THROMBOCYTOPENIA [None]
